FAERS Safety Report 19655536 (Version 2)
Quarter: 2021Q3

REPORT INFORMATION
  Report Type: Report from Study
  Country: BE (occurrence: BE)
  Receive Date: 20210804
  Receipt Date: 20210806
  Transmission Date: 20211014
  Serious: Yes (Life-Threatening, Hospitalization, Disabling, Other)
  Sender: FDA-Public Use
  Company Number: NVSC2021BE172313

PATIENT
  Age: 62 Year
  Weight: 98 kg

DRUGS (3)
  1. ELTROMBOPAG [Suspect]
     Active Substance: ELTROMBOPAG
     Indication: TRANSPLANT DYSFUNCTION
     Dosage: 150 MG
     Route: 048
     Dates: start: 20210618, end: 20210720
  2. BUSULFAN. [Suspect]
     Active Substance: BUSULFAN
     Indication: PALLIATIVE CARE
     Dosage: 672 MG (CUMULATIVE DOSE)
     Route: 065
     Dates: start: 20210514, end: 20210516
  3. ISAVUCONAZOLE [Suspect]
     Active Substance: ISAVUCONAZOLE
     Indication: MUCORMYCOSIS
     Dosage: 200 MG, QD
     Route: 065
     Dates: start: 20210618

REACTIONS (2)
  - Idiopathic pulmonary fibrosis [Not Recovered/Not Resolved]
  - Hypoxia [Not Recovered/Not Resolved]

NARRATIVE: CASE EVENT DATE: 20210625
